FAERS Safety Report 23119207 (Version 2)
Quarter: 2024Q1

REPORT INFORMATION
  Report Type: Spontaneous
  Country: JP (occurrence: JP)
  Receive Date: 20231028
  Receipt Date: 20240130
  Transmission Date: 20240410
  Serious: Yes (Other)
  Sender: FDA-Public Use
  Company Number: JP-AMGEN-JPNSP2023189497

PATIENT
  Age: 6 Year

DRUGS (1)
  1. BLINCYTO [Suspect]
     Active Substance: BLINATUMOMAB
     Indication: Product used for unknown indication
     Dosage: 35 MICROGRAM, INTRAVENOUS DRIP INFUSION
     Route: 042
     Dates: start: 2022

REACTIONS (1)
  - Disease recurrence [Unknown]
